FAERS Safety Report 4894761-5 (Version None)
Quarter: 2006Q1

REPORT INFORMATION
  Report Type: 
  Country: None (occurrence: None)
  Receive Date: 20060126
  Receipt Date: 20060126
  Transmission Date: 20060701
  Serious: No
  Sender: FDA-Public Use
  Company Number: None

PATIENT
  Sex: Female
  Weight: 99.7913 kg

DRUGS (1)
  1. AVELOX [Suspect]
     Indication: EAR INFECTION
     Dosage: 400MG  EVERY DAY  PO
     Route: 048
     Dates: start: 20060117, end: 20060124

REACTIONS (3)
  - NAUSEA [None]
  - TINNITUS [None]
  - VOMITING [None]
